FAERS Safety Report 15771694 (Version 1)
Quarter: 2018Q4

REPORT INFORMATION
  Report Type: Spontaneous
  Country: US (occurrence: US)
  Receive Date: 20181228
  Receipt Date: 20181228
  Transmission Date: 20190205
  Serious: No
  Sender: FDA-Public Use
  Company Number: US-SA-2018SA147471

PATIENT
  Age: 2 Year
  Sex: Female
  Weight: 14.06 kg

DRUGS (11)
  1. CIPRODEX [CIPROFLOXACIN HYDROCHLORIDE] [Concomitant]
     Dosage: 4 GTT DROPS LEFT EAR
     Dates: start: 20180522
  2. EPINEPHRINE. [Concomitant]
     Active Substance: EPINEPHRINE
     Indication: ANAPHYLACTIC REACTION
     Dosage: 0.15 MG, PRN
     Route: 030
     Dates: start: 20180126
  3. ENALAPRIL [Concomitant]
     Active Substance: ENALAPRIL
     Dosage: 1.5 ML, BID
     Route: 048
     Dates: start: 20180124
  4. ACETAMINOPHEN. [Concomitant]
     Active Substance: ACETAMINOPHEN
     Indication: ANAPHYLACTIC REACTION
  5. LARONIDASE [Suspect]
     Active Substance: LARONIDASE
     Indication: MUCOPOLYSACCHARIDOSIS
     Dosage: 0.62 MG/KG (8.7 MG), QW
     Route: 041
  6. ACETAMINOPHEN. [Concomitant]
     Active Substance: ACETAMINOPHEN
     Indication: PREMEDICATION
     Dosage: 160 MG
     Route: 048
     Dates: start: 20180126
  7. DIPHENHYDRAMINE. [Concomitant]
     Active Substance: DIPHENHYDRAMINE
     Indication: ANAPHYLACTIC REACTION
     Dosage: 12.5 MG
     Route: 048
     Dates: start: 20180126
  8. NORMAL SALINE [Concomitant]
     Active Substance: SODIUM CHLORIDE
     Indication: ANAPHYLACTIC REACTION
     Dosage: 1 DF
     Route: 042
     Dates: start: 20180126
  9. HEPARIN [Concomitant]
     Active Substance: HEPARIN SODIUM
     Indication: FLUSHING
     Dosage: 100 UN/ML
     Route: 042
     Dates: start: 20180126
  10. LIDOCAINE/PRILOCAINE [Concomitant]
     Active Substance: LIDOCAINE\PRILOCAINE
     Indication: PREMEDICATION
     Dosage: 2.5 %
     Route: 061
     Dates: start: 20180126
  11. NORMAL SALINE [Concomitant]
     Active Substance: SODIUM CHLORIDE
     Indication: FLUSHING

REACTIONS (1)
  - Ear infection [Unknown]
